FAERS Safety Report 15950453 (Version 2)
Quarter: 2019Q2

REPORT INFORMATION
  Report Type: Spontaneous
  Country: JP (occurrence: JP)
  Receive Date: 20190211
  Receipt Date: 20190401
  Transmission Date: 20190711
  Serious: Yes (Hospitalization)
  Sender: FDA-Public Use
  Company Number: JP-JNJFOC-20190209515

PATIENT
  Age: 85 Year
  Sex: Female

DRUGS (4)
  1. REMINYL [Suspect]
     Active Substance: GALANTAMINE
     Indication: DEMENTIA
     Route: 048
     Dates: start: 20190204, end: 20190204
  2. HOCHUEKKITO [Concomitant]
     Active Substance: HERBALS
     Route: 048
  3. NEXIUM [Concomitant]
     Active Substance: ESOMEPRAZOLE MAGNESIUM
     Route: 048
  4. CONIEL [Concomitant]
     Active Substance: BENIDIPINE HYDROCHLORIDE
     Route: 048

REACTIONS (4)
  - Depressed level of consciousness [Recovered/Resolved]
  - Seizure [Recovered/Resolved]
  - Overdose [Unknown]
  - Vomiting [Unknown]

NARRATIVE: CASE EVENT DATE: 20190204
